FAERS Safety Report 10178271 (Version 1)
Quarter: 2014Q2

REPORT INFORMATION
  Report Type: Report from Study
  Country: MX (occurrence: MX)
  Receive Date: 20140519
  Receipt Date: 20140519
  Transmission Date: 20141212
  Serious: Yes (Death)
  Sender: FDA-Public Use
  Company Number: PHHY2014MX059884

PATIENT
  Sex: Female

DRUGS (5)
  1. EXJADE [Suspect]
     Indication: IRON OVERLOAD
     Dosage: 1125 MG, QD (2 500MG TABLETS AND 1 125MG TABLET BEFORE MEALS)
     Route: 048
     Dates: start: 20140422
  2. FOLIC ACID [Concomitant]
     Dosage: UNK UKN, QD
  3. CYCLOSPORINE [Concomitant]
     Dosage: UNK UKN, QD
  4. MYCOPHENOLIC ACID [Concomitant]
     Dosage: UNK UKN, UNK
     Dates: start: 201404
  5. PREDNISONE [Concomitant]
     Dosage: UNK UKN, QD

REACTIONS (1)
  - Death [Fatal]
